FAERS Safety Report 14362258 (Version 1)
Quarter: 2018Q1

REPORT INFORMATION
  Report Type: Spontaneous
  Country: US (occurrence: US)
  Receive Date: 20180108
  Receipt Date: 20180108
  Transmission Date: 20180509
  Serious: No
  Sender: FDA-Public Use
  Company Number: US-TEVA-2017-US-833700

PATIENT
  Sex: Male

DRUGS (1)
  1. CARBIDOPA AND LEVODOPA [Suspect]
     Active Substance: CARBIDOPA\LEVODOPA
     Indication: RESTLESS LEGS SYNDROME
     Dosage: DOSE STRENGTH:  25/100 MG

REACTIONS (2)
  - Drug ineffective for unapproved indication [Unknown]
  - Paraesthesia [Unknown]
